FAERS Safety Report 21904207 (Version 1)
Quarter: 2023Q1

REPORT INFORMATION
  Report Type: Spontaneous
  Country: US (occurrence: US)
  Receive Date: 20230124
  Receipt Date: 20230124
  Transmission Date: 20230418
  Serious: No
  Sender: FDA-Public Use
  Company Number: US-ELI_LILLY_AND_COMPANY-US202301007687

PATIENT
  Age: 51 Year
  Sex: Female

DRUGS (1)
  1. TRULICITY [Suspect]
     Active Substance: DULAGLUTIDE
     Indication: Type 2 diabetes mellitus
     Dosage: 3.0 MG, UNKNOWN
     Route: 065
     Dates: start: 2020

REACTIONS (6)
  - Feeling abnormal [Unknown]
  - Pollakiuria [Unknown]
  - Paraesthesia [Unknown]
  - Headache [Unknown]
  - Somnolence [Unknown]
  - Sluggishness [Unknown]

NARRATIVE: CASE EVENT DATE: 20230101
